FAERS Safety Report 6900491-8 (Version None)
Quarter: 2010Q3

REPORT INFORMATION
  Report Type: 
  Country: None (occurrence: None)
  Receive Date: 20100803
  Receipt Date: 20100722
  Transmission Date: 20110219
  Serious: Yes (Hospitalization)
  Sender: FDA-Public Use
  Company Number: FR-PFIZER INC-2010091549

PATIENT
  Age: 62 Year
  Sex: Female

DRUGS (17)
  1. CYTARABINE [Suspect]
     Indication: LYMPHOMA
     Dosage: 1 DF, CYCLIC
     Route: 008
     Dates: end: 20070701
  2. METHOTREXATE SODIUM [Suspect]
     Indication: LYMPHOMA
     Dosage: 1 DF, CYCLIC
     Route: 042
     Dates: end: 20070201
  3. METHOTREXATE SODIUM [Suspect]
     Dosage: 1 DF, CYCLIC
     Route: 008
     Dates: end: 20070701
  4. DEPO-MEDROL [Suspect]
     Dosage: 1 DF, CYCLIC
     Route: 008
     Dates: end: 20070701
  5. METHYLPREDNISOLONE [Suspect]
     Indication: LYMPHOMA
     Dosage: 1 DF, CYCLIC
     Route: 042
     Dates: end: 20070201
  6. BICNU [Suspect]
     Indication: LYMPHOMA
     Dosage: 1 DF, CYCLIC
     Route: 042
     Dates: end: 20070201
  7. ETOPOSIDE [Suspect]
     Indication: LYMPHOMA
     Dosage: 1 DF, CYCLIC
     Route: 042
     Dates: end: 20070201
  8. LEVOTHYROXINE SODIUM [Concomitant]
  9. TEATROIS [Concomitant]
  10. BISOPROLOL FUMARATE [Concomitant]
  11. PERINDOPRIL ERBUMINE [Concomitant]
  12. NORFLOXACIN [Concomitant]
     Indication: URINARY TRACT INFECTION
  13. CALCIUM CARBONATE/COLECALCIFEROL [Concomitant]
  14. LYRICA [Concomitant]
  15. CLONAZEPAM [Concomitant]
  16. FORLAX [Concomitant]
  17. SPAGULAX [Concomitant]

REACTIONS (2)
  - LEUKOENCEPHALOPATHY [None]
  - SENSORIMOTOR DISORDER [None]
